FAERS Safety Report 8946026 (Version 1)
Quarter: 2012Q4

REPORT INFORMATION
  Report Type: 
  Country: US (occurrence: US)
  Receive Date: 20121205
  Receipt Date: 20121205
  Transmission Date: 20130627
  Serious: Yes (Hospitalization)
  Sender: FDA-Public Use
  Company Number: US-UCBSA-071368

PATIENT
  Age: 24 Year
  Sex: Male

DRUGS (2)
  1. CIMZIA [Suspect]
     Indication: CROHN^S DISEASE
     Dates: start: 20121114
  2. CIMZIA [Suspect]
     Indication: CROHN^S DISEASE
     Dates: start: 20100505, end: 2012

REACTIONS (2)
  - Crohn^s disease [Recovered/Resolved]
  - Dehydration [Recovered/Resolved]
